FAERS Safety Report 10073937 (Version 1)
Quarter: 2014Q2

REPORT INFORMATION
  Report Type: Spontaneous
  Country: US (occurrence: US)
  Receive Date: 20140411
  Receipt Date: 20140411
  Transmission Date: 20141212
  Serious: No
  Sender: FDA-Public Use
  Company Number: US-SANOFI-AVENTIS-2013SA040943

PATIENT
  Age: 52 Year
  Sex: Female

DRUGS (2)
  1. ALLEGRA-D, 24 HR [Suspect]
     Indication: HYPERSENSITIVITY
     Route: 048
     Dates: start: 20130403, end: 20130404
  2. SUDAFED [Concomitant]

REACTIONS (4)
  - Nasal congestion [Unknown]
  - Rhinorrhoea [Unknown]
  - Throat irritation [Unknown]
  - Therapeutic response decreased [Unknown]
